FAERS Safety Report 19117052 (Version 1)
Quarter: 2021Q2

REPORT INFORMATION
  Report Type: Report from Study
  Country: US (occurrence: US)
  Receive Date: 20210409
  Receipt Date: 20210409
  Transmission Date: 20210717
  Serious: No
  Sender: FDA-Public Use
  Company Number: US-AGIOS-2104US02647

PATIENT

DRUGS (6)
  1. CCNU [Concomitant]
     Active Substance: LOMUSTINE
  2. GABAPENTIN. [Concomitant]
     Active Substance: GABAPENTIN
  3. TIBSOVO [Suspect]
     Active Substance: IVOSIDENIB
     Indication: BRAIN NEOPLASM MALIGNANT
     Dosage: 250 MILLIGRAM, 2 TABLETS (500MG), QD
     Route: 048
  4. DECADRON [Concomitant]
     Active Substance: DEXAMETHASONE
  5. AVASTIN [Concomitant]
     Active Substance: BEVACIZUMAB
  6. DEXAMETHASONE. [Concomitant]
     Active Substance: DEXAMETHASONE

REACTIONS (3)
  - Diarrhoea [Unknown]
  - Nausea [Unknown]
  - Off label use [Unknown]
